FAERS Safety Report 12783181 (Version 1)
Quarter: 2016Q3

REPORT INFORMATION
  Report Type: Spontaneous
  Country: US (occurrence: US)
  Receive Date: 20160926
  Receipt Date: 20160926
  Transmission Date: 20161109
  Serious: Yes (Other)
  Sender: FDA-Public Use
  Company Number: None

PATIENT
  Age: 28 Year
  Sex: Female
  Weight: 67.5 kg

DRUGS (9)
  1. PROBIOTICS [Concomitant]
     Active Substance: PROBIOTICS NOS
  2. MILK THISTLE [Concomitant]
     Active Substance: MILK THISTLE
  3. IRON [Concomitant]
     Active Substance: IRON
  4. VITAMIN C [Concomitant]
     Active Substance: ASCORBIC ACID
  5. SERTRALINE [Concomitant]
     Active Substance: SERTRALINE HYDROCHLORIDE
  6. CALCIUM [Concomitant]
     Active Substance: CALCIUM
  7. LEVAQUIN [Suspect]
     Active Substance: LEVOFLOXACIN
     Indication: ACUTE SINUSITIS
     Route: 048
     Dates: start: 20160920, end: 20160923
  8. DIGESTIVE ENZYMES [Concomitant]
     Active Substance: UNSPECIFIED INGREDIENT
  9. MSM [Concomitant]
     Active Substance: DIMETHYL SULFONE

REACTIONS (9)
  - Agitation [None]
  - Anxiety [None]
  - Suicidal ideation [None]
  - Dizziness [None]
  - Crying [None]
  - Tremor [None]
  - Jaw disorder [None]
  - Derealisation [None]
  - Insomnia [None]

NARRATIVE: CASE EVENT DATE: 20160923
